FAERS Safety Report 10402632 (Version 5)
Quarter: 2015Q1

REPORT INFORMATION
  Report Type: Spontaneous
  Country: GB (occurrence: GB)
  Receive Date: 20140822
  Receipt Date: 20150317
  Transmission Date: 20150720
  Serious: Yes (Other)
  Sender: FDA-Public Use
  Company Number: GB-ACTAVIS-2014-18043

PATIENT

DRUGS (4)
  1. BUPIVACAINE (UNKNOWN) [Suspect]
     Active Substance: BUPIVACAINE
     Indication: PRODUCT USED FOR UNKNOWN INDICATION
     Dosage: 0.126 MG, DAILY; 20MG/ML
     Route: 037
  2. CLONIDINE. [Suspect]
     Active Substance: CLONIDINE
     Indication: PRODUCT USED FOR UNKNOWN INDICATION
     Dosage: 0.189 ?G, DAILY; 30 MCG/ML; 0.03MG/ML
     Route: 037
  3. BACLOFEN. [Suspect]
     Active Substance: BACLOFEN
     Indication: SPINAL CORD INJURY THORACIC
     Dosage: 1.53 ?G, DAILY; 243 MCG/ML
     Route: 037
  4. MORPHINE (UNKNOWN) [Suspect]
     Active Substance: MORPHINE
     Indication: PRODUCT USED FOR UNKNOWN INDICATION
     Dosage: 6.3 ?G, DAILY; 1 MG/ML
     Route: 037

REACTIONS (3)
  - Infusion site nodule [Unknown]
  - No therapeutic response [Unknown]
  - Breakthrough pain [Unknown]
